FAERS Safety Report 9916252 (Version 1)
Quarter: 2014Q1

REPORT INFORMATION
  Report Type: Spontaneous
  Country: US (occurrence: None)
  Receive Date: 20140220
  Receipt Date: 20140220
  Transmission Date: 20141002
  Serious: Yes (Disabling, Other)
  Sender: FDA-Public Use
  Company Number: None

PATIENT
  Age: 60 Year
  Sex: Female
  Weight: 56.7 kg

DRUGS (7)
  1. CLARITHROMYCIN ER [Suspect]
     Indication: SINUSITIS
     Route: 048
     Dates: start: 20130823, end: 20130830
  2. LEVOTHYROXINE [Concomitant]
  3. METOPROLOL [Concomitant]
  4. ZOLOFT [Concomitant]
  5. BIO-IDENTICAL HORMONES [Concomitant]
  6. BONE STRENGTH CALCIUM [Concomitant]
  7. VITAMIN D [Concomitant]

REACTIONS (9)
  - Nightmare [None]
  - Heart rate increased [None]
  - Blood pressure increased [None]
  - Tremor [None]
  - Insomnia [None]
  - Nausea [None]
  - Ill-defined disorder [None]
  - Weight decreased [None]
  - Electrocardiogram abnormal [None]
